FAERS Safety Report 9227187 (Version 1)
Quarter: 2013Q1

REPORT INFORMATION
  Report Type: Spontaneous
  Country: US (occurrence: None)
  Receive Date: 20121012
  Receipt Date: 20121012
  Transmission Date: 20140127
  Serious: Yes (Other)
  Sender: FDA-Public Use
  Company Number: 1000029340

PATIENT
  Age: 35 Year
  Sex: Female

DRUGS (2)
  1. LEXAPRO (ESCITALOPRAM OXALATE) (20 MILLIGRAM, TABLETS) [Suspect]
     Indication: POSTPARTUM DEPRESSION
     Route: 048
  2. XANAX (ALPRAZOLAM) (ALPRAZOLAM) [Concomitant]

REACTIONS (4)
  - Suicidal ideation [None]
  - Crying [None]
  - Anger [None]
  - Agitation [None]
